FAERS Safety Report 25858367 (Version 1)
Quarter: 2025Q3

REPORT INFORMATION
  Report Type: Spontaneous
  Country: EU (occurrence: EU)
  Receive Date: 20250929
  Receipt Date: 20250929
  Transmission Date: 20251021
  Serious: Yes (Other)
  Sender: DAIICHI
  Company Number: EU-ASTRAZENECA-202509EEA019117RO

PATIENT
  Age: 69 Year
  Sex: Female

DRUGS (3)
  1. TRASTUZUMAB DERUXTECAN [Suspect]
     Active Substance: TRASTUZUMAB DERUXTECAN
     Indication: Product used for unknown indication
     Dosage: 5.4 MG/KG, ONCE EVERY 3 WK
     Route: 065
     Dates: start: 202409
  2. PALONOSTERON BIDIPHAR [Concomitant]
     Indication: Antiemetic supportive care
     Route: 065
  3. NETUPITANT [Concomitant]
     Active Substance: NETUPITANT
     Indication: Antiemetic supportive care
     Route: 065

REACTIONS (1)
  - Malignant neoplasm progression [Unknown]

NARRATIVE: CASE EVENT DATE: 20250201
